FAERS Safety Report 8874720 (Version 2)
Quarter: 2015Q3

REPORT INFORMATION
  Report Type: Report from Study
  Country: US (occurrence: US)
  Receive Date: 20121023
  Receipt Date: 20150903
  Transmission Date: 20151125
  Serious: Yes (Other)
  Sender: FDA-Public Use
  Company Number: US-ROCHE-1136195

PATIENT
  Sex: Female

DRUGS (5)
  1. RAPTIVA [Suspect]
     Active Substance: EFALIZUMAB
     Dosage: CONDITIONING DOSE
     Route: 065
  2. RAPTIVA [Suspect]
     Active Substance: EFALIZUMAB
     Indication: PSORIASIS
     Dosage: 137.5 MG STOP DATE: /MAR/2008
     Route: 058
     Dates: start: 2004
  3. RAPTIVA [Suspect]
     Active Substance: EFALIZUMAB
     Route: 065
  4. RAPTIVA [Suspect]
     Active Substance: EFALIZUMAB
     Route: 065
  5. RAPTIVA [Suspect]
     Active Substance: EFALIZUMAB
     Indication: PUSTULAR PSORIASIS
     Route: 065

REACTIONS (4)
  - Haemorrhage [Unknown]
  - Psoriasis [Unknown]
  - Pain [Unknown]
  - Drug dose omission [Unknown]
